FAERS Safety Report 7804665-3 (Version None)
Quarter: 2011Q4

REPORT INFORMATION
  Report Type: 
  Country: None (occurrence: None)
  Receive Date: 20111010
  Receipt Date: 20111004
  Transmission Date: 20120403
  Serious: Yes (Hospitalization)
  Sender: FDA-Public Use
  Company Number: NL-SANOFI-AVENTIS-2011SA065306

PATIENT
  Age: 80 Year
  Sex: Female
  Weight: 100 kg

DRUGS (16)
  1. MARCUMAR [Concomitant]
     Route: 048
     Dates: start: 20010101
  2. METOPROLOL TARTRATE [Concomitant]
     Route: 048
     Dates: start: 20020101
  3. ACETAMINOPHEN [Concomitant]
     Route: 048
  4. SLOW-K [Concomitant]
     Route: 048
     Dates: start: 20090101
  5. SERETIDE [Concomitant]
     Route: 055
  6. OXAZEPAM [Concomitant]
     Route: 048
  7. SIMVASTATIN [Concomitant]
     Route: 048
     Dates: start: 19980101
  8. LOPERAMIDE HCL [Concomitant]
     Route: 048
  9. FUROSEMIDE [Suspect]
     Indication: OEDEMA
     Route: 048
     Dates: start: 19960101, end: 20110920
  10. NIFEDIPINE [Concomitant]
     Route: 048
  11. SPIRIVA [Concomitant]
     Route: 055
  12. OMEPRAZOLE [Suspect]
     Route: 048
     Dates: start: 20000101, end: 20110921
  13. KEPPRA [Concomitant]
     Route: 048
     Dates: start: 20090301
  14. ARCOXIA [Concomitant]
     Route: 048
  15. LEVOTHYROXINE SODIUM [Concomitant]
     Route: 048
  16. DIAZEPAM [Concomitant]
     Route: 048

REACTIONS (4)
  - BLOOD POTASSIUM DECREASED [None]
  - CONVULSION [None]
  - HYPOCALCAEMIA [None]
  - HYPOMAGNESAEMIA [None]
